FAERS Safety Report 10246944 (Version 1)
Quarter: 2014Q2

REPORT INFORMATION
  Report Type: Spontaneous
  Country: US (occurrence: None)
  Receive Date: 20140617
  Receipt Date: 20140617
  Transmission Date: 20141212
  Serious: Yes (Hospitalization)
  Sender: FDA-Public Use
  Company Number: None

PATIENT
  Age: 10 Year
  Sex: Male
  Weight: 39.8 kg

DRUGS (5)
  1. PEG-L-ASPARAGINASE (K-H) [Suspect]
     Dates: end: 20140410
  2. PREDNISONE [Suspect]
     Dates: end: 20140502
  3. CYTARABINE [Suspect]
     Dates: end: 20140405
  4. DAUNORUBICIN [Suspect]
     Dates: end: 20140428
  5. VINCRISTINE SULFATE [Suspect]
     Dates: end: 20140428

REACTIONS (6)
  - Confusional state [None]
  - Blood glucose decreased [None]
  - Post procedural complication [None]
  - Candida test positive [None]
  - Diabetes mellitus [None]
  - Type 1 diabetes mellitus [None]
